FAERS Safety Report 12059891 (Version 2)
Quarter: 2016Q1

REPORT INFORMATION
  Report Type: Spontaneous
  Country: AU (occurrence: AU)
  Receive Date: 20160210
  Receipt Date: 20160219
  Transmission Date: 20160526
  Serious: Yes (Death)
  Sender: FDA-Public Use
  Company Number: AU-ACTELION-A-CH2015-122074

PATIENT
  Age: 37 Year
  Sex: Female

DRUGS (5)
  1. VELETRI [Suspect]
     Active Substance: EPOPROSTENOL
     Indication: PORTOPULMONARY HYPERTENSION
     Dosage: UNK
     Route: 042
     Dates: start: 20150323
  2. TRACLEER [Suspect]
     Active Substance: BOSENTAN
     Indication: PORTOPULMONARY HYPERTENSION
     Dosage: 125 MG, BID
     Route: 048
  3. OPSUMIT [Suspect]
     Active Substance: MACITENTAN
     Indication: PORTOPULMONARY HYPERTENSION
     Dosage: 10 MG, OD
     Route: 048
  4. VENTAVIS [Suspect]
     Active Substance: ILOPROST
     Indication: PORTOPULMONARY HYPERTENSION
     Dosage: UNK MCG, OD
     Route: 055
  5. SILDENAFIL. [Concomitant]
     Active Substance: SILDENAFIL
     Dosage: UNK MG, OD

REACTIONS (13)
  - Multiple organ dysfunction syndrome [Fatal]
  - Drug tolerance decreased [Unknown]
  - Pulmonary arterial pressure abnormal [Fatal]
  - Arrhythmia [Fatal]
  - Pulmonary hypertension [Fatal]
  - Concomitant disease aggravated [Fatal]
  - Condition aggravated [Fatal]
  - Hepatic failure [Fatal]
  - Nausea [Not Recovered/Not Resolved]
  - Renal failure [Fatal]
  - Cardiac failure [Fatal]
  - Headache [Unknown]
  - Gastritis [Not Recovered/Not Resolved]
